FAERS Safety Report 10234108 (Version 1)
Quarter: 2014Q2

REPORT INFORMATION
  Report Type: Spontaneous
  Country: US (occurrence: US)
  Receive Date: 20140612
  Receipt Date: 20140612
  Transmission Date: 20141212
  Serious: Yes (Hospitalization)
  Sender: FDA-Public Use
  Company Number: US-GLAXOSMITHKLINE-A1075689A

PATIENT
  Age: 86 Year
  Sex: Female

DRUGS (16)
  1. FLOVENT [Suspect]
     Indication: LUNG DISORDER
     Dosage: 1PUFF TWICE PER DAY
     Route: 055
     Dates: start: 201310
  2. LORTAB [Concomitant]
  3. PAIN MEDICATION (UNSPECIFIED) [Concomitant]
  4. ANTI-CHOLESTEROL MEDICATION [Concomitant]
  5. BLOOD PRESSURE MEDICATION [Concomitant]
  6. UNKNOWN MEDICATION [Concomitant]
  7. ARTHRITIS MEDICATION [Concomitant]
  8. NERVE MEDICINE [Concomitant]
  9. ARTHRITIS MEDICATION [Concomitant]
  10. ABILIFY [Concomitant]
  11. ATIVAN [Concomitant]
  12. POTASSIUM [Concomitant]
  13. HEART MEDICATION [Concomitant]
  14. DIABETES MEDICATION [Concomitant]
  15. UNSPECIFIED MEDICATIONS [Concomitant]
  16. ANTI-DEPRESSIVE MEDICATION [Concomitant]

REACTIONS (2)
  - Chest pain [Recovering/Resolving]
  - Dyspnoea [Recovering/Resolving]
